FAERS Safety Report 20882339 (Version 1)
Quarter: 2022Q2

REPORT INFORMATION
  Report Type: Report from Study
  Country: US (occurrence: US)
  Receive Date: 20220527
  Receipt Date: 20220527
  Transmission Date: 20220721
  Serious: Yes (Other)
  Sender: FDA-Public Use
  Company Number: US-AUROBINDO-AUR-APL-2022-018994

PATIENT
  Age: 19 Year
  Sex: Male

DRUGS (3)
  1. DECITABINE [Suspect]
     Active Substance: DECITABINE
     Indication: Myeloid leukaemia
     Dosage: UNK, CYCLICAL
     Route: 065
  2. CYTARABINE [Concomitant]
     Active Substance: CYTARABINE
     Indication: Myeloid leukaemia
     Dosage: 100 MICROGRAM/SQ. METER, CYCLICAL
     Route: 065
  3. DAUNORUBICIN [Concomitant]
     Active Substance: DAUNORUBICIN
     Indication: Myeloid leukaemia
     Dosage: 44 MILLIGRAM/SQ. METER, CYCLICAL
     Route: 065

REACTIONS (1)
  - Therapy partial responder [Unknown]
